FAERS Safety Report 15815458 (Version 1)
Quarter: 2019Q1

REPORT INFORMATION
  Report Type: Spontaneous
  Country: US (occurrence: US)
  Receive Date: 20190112
  Receipt Date: 20190112
  Transmission Date: 20190417
  Serious: Yes (Hospitalization, Other)
  Sender: FDA-Public Use
  Company Number: US-UNICHEM PHARMACEUTICALS (USA) INC-UCM201812-000370

PATIENT
  Age: 50 Year
  Sex: Male

DRUGS (4)
  1. AMLODIPINE [Suspect]
     Active Substance: AMLODIPINE BESYLATE
     Dosage: 80 MG SIXTEEN TABLETS OF AMLODIPINE
  2. METHOCARBAMOL. [Suspect]
     Active Substance: METHOCARBAMOL
  3. METFORMIN [Suspect]
     Active Substance: METFORMIN HYDROCHLORIDE
     Dosage: 500 MG THIRTY TABLETS
  4. SERTRALINE [Suspect]
     Active Substance: SERTRALINE HYDROCHLORIDE
     Dosage: TWENTY TABLETS

REACTIONS (7)
  - Haemodynamic instability [Recovered/Resolved]
  - Intentional overdose [Unknown]
  - Electrocardiogram abnormal [Recovered/Resolved]
  - Toxicity to various agents [Unknown]
  - Hypotension [Recovered/Resolved]
  - Shock [Recovered/Resolved]
  - Tachycardia [Recovered/Resolved]
